FAERS Safety Report 5836238-6 (Version None)
Quarter: 2008Q3

REPORT INFORMATION
  Report Type: 
  Country: None (occurrence: None)
  Receive Date: 20080806
  Receipt Date: 20080806
  Transmission Date: 20090109
  Serious: Yes (Hospitalization)
  Sender: FDA-Public Use
  Company Number: None

PATIENT
  Age: 69 Year
  Sex: Male
  Weight: 105 kg

DRUGS (1)
  1. SORAFENIB 200MG - BAYER [Suspect]
     Indication: RENAL CELL CARCINOMA
     Dosage: 600 MG BID, PO
     Route: 048
     Dates: start: 20070228, end: 20080721

REACTIONS (2)
  - FALL [None]
  - HUMERUS FRACTURE [None]
